FAERS Safety Report 16923423 (Version 1)
Quarter: 2019Q4

REPORT INFORMATION
  Report Type: Spontaneous
  Country: AU (occurrence: AU)
  Receive Date: 20191016
  Receipt Date: 20191016
  Transmission Date: 20200122
  Serious: Yes (Hospitalization, Other)
  Sender: FDA-Public Use
  Company Number: AU-LUPIN PHARMACEUTICALS INC.-2019-06549

PATIENT
  Age: 61 Year
  Sex: Female

DRUGS (3)
  1. NITAZOXANIDE [Suspect]
     Active Substance: NITAZOXANIDE
     Indication: BLASTOCYSTIS INFECTION
     Dosage: 5000 MILLIGRAM
  2. SECNIDAZOLE [Suspect]
     Active Substance: SECNIDAZOLE
     Indication: BLASTOCYSTIS INFECTION
     Dosage: 6000 MILLIGRAM
  3. FURAZOLIDONE [Suspect]
     Active Substance: FURAZOLIDONE
     Indication: BLASTOCYSTIS INFECTION
     Dosage: 1500 MILLIGRAM

REACTIONS (1)
  - Type I hypersensitivity [Recovered/Resolved]
